FAERS Safety Report 8916551 (Version 2)
Quarter: 2013Q1

REPORT INFORMATION
  Report Type: Spontaneous
  Country: DK (occurrence: CA)
  Receive Date: 20121120
  Receipt Date: 20130301
  Transmission Date: 20140127
  Serious: Yes (Other)
  Sender: FDA-Public Use
  Company Number: CA-FRI-1000040552

PATIENT
  Sex: Female

DRUGS (3)
  1. CELEXA [Suspect]
     Dosage: 20 MG
     Route: 048
  2. CELEXA [Suspect]
     Dosage: 30 MG
     Route: 048
     Dates: start: 201210
  3. LORAZEPAM [Concomitant]

REACTIONS (3)
  - Deafness unilateral [Not Recovered/Not Resolved]
  - Ear pain [Unknown]
  - Tinnitus [Unknown]
